FAERS Safety Report 24978893 (Version 2)
Quarter: 2025Q1

REPORT INFORMATION
  Report Type: Spontaneous
  Country: US (occurrence: US)
  Receive Date: 20250218
  Receipt Date: 20250226
  Transmission Date: 20250409
  Serious: No
  Sender: APOTEX
  Company Number: US-APOTEX-2025AP002196

PATIENT
  Age: 50 Year
  Sex: Male

DRUGS (4)
  1. TOBRAMYCIN [Suspect]
     Active Substance: TOBRAMYCIN
     Indication: Infective keratitis
     Route: 065
  2. MOXIFLOXACIN [Suspect]
     Active Substance: MOXIFLOXACIN
     Indication: Infective keratitis
     Route: 061
  3. VANCOMYCIN [Suspect]
     Active Substance: VANCOMYCIN
     Indication: Infective keratitis
     Route: 047
  4. CYCLOPENTOLATE [Suspect]
     Active Substance: CYCLOPENTOLATE
     Indication: Infective keratitis
     Dosage: 1 PERCENT, QD
     Route: 047

REACTIONS (3)
  - Persistent corneal epithelial defect [Recovering/Resolving]
  - Toxicity to various agents [Recovering/Resolving]
  - Condition aggravated [Unknown]
